FAERS Safety Report 7327910-X (Version None)
Quarter: 2011Q1

REPORT INFORMATION
  Report Type: 
  Country: None (occurrence: None)
  Receive Date: 20110303
  Receipt Date: 20110225
  Transmission Date: 20110831
  Serious: Yes (Death)
  Sender: FDA-Public Use
  Company Number: US-JNJFOC-20110300458

PATIENT
  Age: 50 Year
  Sex: Female

DRUGS (2)
  1. PROPULSID [Suspect]
     Indication: GASTROOESOPHAGEAL REFLUX DISEASE
     Route: 048
  2. PROPULSID [Suspect]
     Route: 048

REACTIONS (1)
  - CARDIAC FAILURE [None]
